FAERS Safety Report 18418177 (Version 1)
Quarter: 2020Q4

REPORT INFORMATION
  Report Type: Spontaneous
  Country: BD (occurrence: BD)
  Receive Date: 20201023
  Receipt Date: 20201023
  Transmission Date: 20210114
  Serious: Yes (Death)
  Sender: FDA-Public Use
  Company Number: BD-ROCHE-2616585

PATIENT
  Age: 48 Year
  Sex: Female

DRUGS (1)
  1. XELODA [Suspect]
     Active Substance: CAPECITABINE
     Indication: BREAST CANCER METASTATIC
     Dosage: XELODA (3+0+2) FOR 14 DAYS WITH 7 DAYS OFF
     Route: 065

REACTIONS (9)
  - Palpitations [Unknown]
  - Cough [Unknown]
  - Pain [Unknown]
  - Restlessness [Unknown]
  - Insomnia [Unknown]
  - Death [Fatal]
  - Malaise [Unknown]
  - Lung disorder [Unknown]
  - Burning sensation [Unknown]

NARRATIVE: CASE EVENT DATE: 202008
